FAERS Safety Report 10621515 (Version 1)
Quarter: 2014Q4

REPORT INFORMATION
  Report Type: Spontaneous
  Country: US (occurrence: None)
  Receive Date: 20141128
  Receipt Date: 20141128
  Transmission Date: 20150529
  Serious: Yes (Other)
  Sender: FDA-Public Use
  Company Number: 001831863A

PATIENT
  Sex: Female

DRUGS (6)
  1. DARK SPOT CORRECTOR [Suspect]
     Active Substance: POLYETHYLENE GLYCOL 400
     Indication: ACNE
     Dosage: TWICE DAILY DERMAL
     Dates: start: 20141012, end: 20141027
  2. PROACTIVPLUS SKIN SMOOTHING EXFOLIATOR [Suspect]
     Active Substance: BENZOYL PEROXIDE
     Indication: ACNE
     Dosage: TWICE DAILY DERMAL
     Dates: start: 20141012, end: 20141027
  3. PROACTIV PLUS MARK FADING [Suspect]
     Active Substance: GLYCOLIC ACID\SALICYLIC ACID
     Indication: ACNE
     Dosage: TWICE DAILY DERMAL
     Dates: start: 20141012, end: 20141027
  4. PROACTIV PLUS PORE TARGETING TREATMENT [Suspect]
     Active Substance: BENZOYL PEROXIDE
     Indication: ACNE
     Dosage: TWICE DAILY DERMAL
     Dates: start: 20141012, end: 20141027
  5. PROACTIV PLUS COMPLEXION PERFECTING HYDRATOR [Suspect]
     Active Substance: SALICYLIC ACID
     Indication: ACNE
     Dosage: TWICE DAILY DERMAL?
     Dates: start: 20141012, end: 20141027
  6. PROACTIV DEEP CLEANSING WASH [Suspect]
     Active Substance: SALICYLIC ACID
     Indication: ACNE
     Dosage: TWICE DAILY DERMAL
     Dates: start: 20141012, end: 20141027

REACTIONS (1)
  - Hypersensitivity [None]

NARRATIVE: CASE EVENT DATE: 20141027
